FAERS Safety Report 25106492 (Version 1)
Quarter: 2025Q1

REPORT INFORMATION
  Report Type: Spontaneous
  Country: DE (occurrence: DE)
  Receive Date: 20250321
  Receipt Date: 20250321
  Transmission Date: 20250409
  Serious: Yes (Hospitalization)
  Sender: TEVA
  Company Number: None

PATIENT
  Age: 71 Year
  Sex: Female
  Weight: 56 kg

DRUGS (2)
  1. LEVOTHYROXINE [Suspect]
     Active Substance: LEVOTHYROXINE
     Indication: Autoimmune thyroiditis
     Route: 065
  2. CORTISONE ACETATE [Suspect]
     Active Substance: CORTISONE ACETATE
     Indication: Autoimmune thyroiditis
     Route: 048
     Dates: start: 20231210, end: 20240424

REACTIONS (8)
  - Fatigue [Unknown]
  - Blood prolactin increased [Unknown]
  - Drug monitoring procedure incorrectly performed [Unknown]
  - Constipation [Unknown]
  - Dizziness [Unknown]
  - Therapeutic agent-diagnostic test interaction [Unknown]
  - Defaecation disorder [Unknown]
  - Prescribed underdose [Unknown]

NARRATIVE: CASE EVENT DATE: 20240301
